FAERS Safety Report 4846397-X (Version None)
Quarter: 2005Q4

REPORT INFORMATION
  Report Type: 
  Country: None (occurrence: None)
  Receive Date: 20051115
  Receipt Date: 20050718
  Transmission Date: 20060501
  Serious: No
  Sender: FDA-Public Use
  Company Number: S05-USA-03653-01

PATIENT
  Age: 87 Year
  Sex: Male

DRUGS (11)
  1. NAMENDA [Suspect]
     Indication: AMNESIA
     Dosage: 5 MG QD PO
     Route: 048
     Dates: start: 20050606, end: 20050612
  2. NAMENDA [Suspect]
     Indication: AMNESIA
     Dosage: 5 MG BID PO
     Route: 048
     Dates: start: 20050613, end: 20050619
  3. NAMENDA [Suspect]
     Indication: AMNESIA
     Dosage: 15 MG QD PO
     Route: 048
     Dates: start: 20050620, end: 20050626
  4. NAMENDA [Suspect]
     Indication: AMNESIA
     Dosage: 10 MG BID PO
     Route: 048
     Dates: start: 20050627
  5. PRAVACHOL [Concomitant]
  6. TOPROL (METOPROLOL) [Concomitant]
  7. ZETIA [Concomitant]
  8. ASPIRIN [Concomitant]
  9. FOLTX (FOLIC ACID/VITAMIN B12/VITAMIN B6) [Concomitant]
  10. ATACAND [Concomitant]
  11. MULTIVITAMIN (NOS) [Concomitant]

REACTIONS (7)
  - DISTURBANCE IN ATTENTION [None]
  - FEELING ABNORMAL [None]
  - FEELING OF RELAXATION [None]
  - LETHARGY [None]
  - MUSCLE TIGHTNESS [None]
  - NEUROLOGICAL EXAMINATION ABNORMAL [None]
  - SOMNOLENCE [None]
